FAERS Safety Report 9580957 (Version 1)
Quarter: 2013Q3

REPORT INFORMATION
  Report Type: Spontaneous
  Country: CA (occurrence: None)
  Receive Date: 20130916
  Receipt Date: 20130916
  Transmission Date: 20140515
  Serious: Yes (Hospitalization)
  Sender: FDA-Public Use
  Company Number: JPI-P-026212

PATIENT
  Age: 39 Year
  Sex: Male
  Weight: 62 kg

DRUGS (1)
  1. XYREM [Suspect]
     Indication: CATAPLEXY
     Dosage: 4.5 GM) (2.25 GM, 2 IN 1 D), ORAL
     Route: 048
     Dates: start: 20081114, end: 20081120

REACTIONS (7)
  - Infection [None]
  - Body temperature increased [None]
  - Joint swelling [None]
  - Inappropriate schedule of drug administration [None]
  - Arthralgia [None]
  - Local swelling [None]
  - Skin exfoliation [None]
